FAERS Safety Report 7852768-X (Version None)
Quarter: 2011Q4

REPORT INFORMATION
  Report Type: 
  Country: None (occurrence: None)
  Receive Date: 20111026
  Receipt Date: 20111004
  Transmission Date: 20120403
  Serious: Yes (Hospitalization)
  Sender: FDA-Public Use
  Company Number: CA-ASTRAZENECA-2011SE59868

PATIENT
  Age: 28 Year
  Sex: Female

DRUGS (1)
  1. NEXIUM [Suspect]
     Indication: GASTROOESOPHAGEAL REFLUX DISEASE
     Route: 048
     Dates: start: 20110901

REACTIONS (3)
  - LOSS OF CONSCIOUSNESS [None]
  - BACTERIAL INFECTION [None]
  - DRUG INEFFECTIVE [None]
